FAERS Safety Report 7470000-6 (Version None)
Quarter: 2011Q2

REPORT INFORMATION
  Report Type: 
  Country: None (occurrence: None)
  Receive Date: 20110510
  Receipt Date: 20110504
  Transmission Date: 20111010
  Serious: Yes (Other)
  Sender: FDA-Public Use
  Company Number: GB-ROCHE-775325

PATIENT
  Sex: Female

DRUGS (1)
  1. HERCEPTIN [Suspect]
     Dosage: RECEIVED 9 CYCLES
     Route: 065
     Dates: start: 20101105

REACTIONS (1)
  - STEVENS-JOHNSON SYNDROME [None]
